FAERS Safety Report 4726019-9 (Version None)
Quarter: 2005Q3

REPORT INFORMATION
  Report Type: 
  Country: None (occurrence: None)
  Receive Date: 20050726
  Receipt Date: 20050726
  Transmission Date: 20060218
  Serious: Yes (Other)
  Sender: FDA-Public Use
  Company Number: None

PATIENT
  Age: 12 Year
  Sex: Female
  Weight: 68.0396 kg

DRUGS (1)
  1. ORTHO EVRA [Suspect]
     Indication: MENSTRUATION IRREGULAR
     Dosage: 1 PATCH  APPLY WEEKLY  TRANSDERMA
     Route: 062
     Dates: start: 20040301, end: 20050722

REACTIONS (1)
  - HEADACHE [None]
